FAERS Safety Report 19551243 (Version 3)
Quarter: 2021Q3

REPORT INFORMATION
  Report Type: Report from Study
  Country: ES (occurrence: ES)
  Receive Date: 20210715
  Receipt Date: 20210726
  Transmission Date: 20211014
  Serious: Yes (Death, Hospitalization)
  Sender: FDA-Public Use
  Company Number: ES-ROCHE-2865152

PATIENT
  Age: 71 Year
  Sex: Male
  Weight: 74 kg

DRUGS (6)
  1. BLINDED BEVACIZUMAB [Suspect]
     Active Substance: BEVACIZUMAB
     Indication: BILE DUCT CANCER
     Dosage: DATE OF MOST RECENT DOSE OF BLINDED BEVACIZUMAB PRIOR TO AE/SAE ONSET: 24/JUN/2021
     Route: 042
     Dates: start: 20210624
  2. METOCLOPRAMIDE. [Concomitant]
     Active Substance: METOCLOPRAMIDE
     Dates: start: 20210624, end: 20210628
  3. ATEZOLIZUMAB. [Suspect]
     Active Substance: ATEZOLIZUMAB
     Indication: BILE DUCT CANCER
     Dosage: DATE OF MOST RECENT DOSE OF ATEZOLIZUMAB (1200 MG) PRIOR TO AE/SAE ONSET: 24/JUN/2021
     Route: 041
     Dates: start: 20210624
  4. GEMCITABINE. [Suspect]
     Active Substance: GEMCITABINE
     Indication: BILE DUCT CANCER
     Dosage: DATE OF MOST RECENT DOSE OF GEMCITABINE (1830 MG) PRIOR TO AE/SAE ONSET: 02/JUL/2021
     Route: 042
     Dates: start: 20210624
  5. LOPERAMIDE [Concomitant]
     Active Substance: LOPERAMIDE
     Indication: DIARRHOEA
     Dates: start: 20210704, end: 20210707
  6. CISPLATIN. [Suspect]
     Active Substance: CISPLATIN
     Indication: BILE DUCT CANCER
     Dosage: DATE OF MOST RECENT DOSE OF CISPLATIN (46 MG) PRIOR TO AE/SAE ONSET: 02/JUL/2021
     Route: 042
     Dates: start: 20210624

REACTIONS (4)
  - Hepatotoxicity [Fatal]
  - Diarrhoea [Not Recovered/Not Resolved]
  - Nephropathy toxic [Not Recovered/Not Resolved]
  - Thrombocytopenia [Fatal]

NARRATIVE: CASE EVENT DATE: 20210705
